FAERS Safety Report 7114202-7 (Version None)
Quarter: 2010Q4

REPORT INFORMATION
  Report Type: 
  Country: None (occurrence: None)
  Receive Date: 20101119
  Receipt Date: 20101116
  Transmission Date: 20110411
  Serious: Yes (Other)
  Sender: FDA-Public Use
  Company Number: FR-PFIZER INC-2010148877

PATIENT
  Age: 47 Year
  Sex: Female

DRUGS (1)
  1. SALAZOPYRINE [Suspect]
     Indication: ANKYLOSING SPONDYLITIS
     Dosage: 500 MG, 4X/DAY
     Dates: start: 20101001

REACTIONS (1)
  - MENINGITIS ASEPTIC [None]
